FAERS Safety Report 13786340 (Version 1)
Quarter: 2017Q3

REPORT INFORMATION
  Report Type: Spontaneous
  Country: US (occurrence: US)
  Receive Date: 20170725
  Receipt Date: 20170725
  Transmission Date: 20171127
  Serious: No
  Sender: FDA-Public Use
  Company Number: None

PATIENT

DRUGS (2)
  1. PAREGORIC [Suspect]
     Active Substance: MORPHINE
     Dosage: DOSAGE FORM - LIQUID
  2. OPIUM TINCTURE [Suspect]
     Active Substance: MORPHINE
     Dosage: DOSAGE FORM - LIQUID

REACTIONS (1)
  - Drug prescribing error [None]
